FAERS Safety Report 11649030 (Version 1)
Quarter: 2015Q4

REPORT INFORMATION
  Report Type: Spontaneous
  Country: US (occurrence: US)
  Receive Date: 20151021
  Receipt Date: 20151021
  Transmission Date: 20160304
  Serious: Yes (Hospitalization, Other)
  Sender: FDA-Public Use
  Company Number: US-DSJP-DSU-2015-122789

PATIENT

DRUGS (11)
  1. BENICAR HCT [Suspect]
     Active Substance: HYDROCHLOROTHIAZIDE\OLMESARTAN MEDOXOMIL
     Dosage: 40/25 MG, UNK
     Dates: start: 20110713, end: 201312
  2. NAPROXEN. [Concomitant]
     Active Substance: NAPROXEN
     Indication: PAIN
     Dosage: 500 MG, UNK
     Dates: start: 20110607, end: 20111118
  3. OMEPRAZOLE. [Concomitant]
     Active Substance: OMEPRAZOLE
     Indication: GASTROOESOPHAGEAL REFLUX DISEASE
     Dosage: 20 MG, UNK
     Dates: start: 20130322, end: 201506
  4. VYTORIN [Concomitant]
     Active Substance: EZETIMIBE\SIMVASTATIN
     Indication: BLOOD CHOLESTEROL INCREASED
     Dosage: 10-20 MG, UNK
     Dates: start: 20050912, end: 20091211
  5. BENICAR HCT [Suspect]
     Active Substance: HYDROCHLOROTHIAZIDE\OLMESARTAN MEDOXOMIL
     Indication: HYPERTENSION
     Dosage: 20/12.5 MG, UNK
     Dates: start: 200412, end: 201107
  6. NORVASC [Concomitant]
     Active Substance: AMLODIPINE BESYLATE
     Indication: HYPERTENSION
     Dosage: 5 MG, QD
     Dates: start: 201312
  7. BENICAR [Suspect]
     Active Substance: OLMESARTAN MEDOXOMIL
     Indication: PRODUCT USED FOR UNKNOWN INDICATION
     Dosage: UNK
     Route: 048
     Dates: start: 2005
  8. LEXAPRO [Concomitant]
     Active Substance: ESCITALOPRAM OXALATE
     Indication: ANXIETY
     Dosage: 10 MG, UNK
     Dates: start: 20051006, end: 20120222
  9. MELOXICAM. [Concomitant]
     Active Substance: MELOXICAM
     Indication: ARTHRALGIA
     Dosage: 7.5 MG, UNK
     Dates: start: 20080109, end: 20080806
  10. DICLOFENAC [Concomitant]
     Active Substance: DICLOFENAC
     Indication: ARTHRALGIA
     Dosage: 75 MG, UNK
     Dates: start: 201006, end: 201010
  11. ORPHENADRINE [Concomitant]
     Active Substance: ORPHENADRINE
     Indication: MYALGIA
     Dosage: 100 MG, UNK
     Dates: start: 20110103, end: 20111118

REACTIONS (18)
  - Dysphagia [Unknown]
  - Hiatus hernia [Unknown]
  - Gastric ulcer [Unknown]
  - Large intestine polyp [Recovered/Resolved]
  - Colonic abscess [Recovered/Resolved]
  - Malnutrition [Unknown]
  - Constipation [Unknown]
  - Haematochezia [Unknown]
  - Diverticulum [Unknown]
  - Ileus [Unknown]
  - Appendicitis [Recovered/Resolved]
  - Pancreatic atrophy [Unknown]
  - Irritable bowel syndrome [Not Recovered/Not Resolved]
  - Diverticulitis [Unknown]
  - Malabsorption [Unknown]
  - Chronic kidney disease [Unknown]
  - Nephrolithiasis [Unknown]
  - Haemorrhoids [Unknown]

NARRATIVE: CASE EVENT DATE: 2004
